FAERS Safety Report 15327660 (Version 1)
Quarter: 2018Q3

REPORT INFORMATION
  Report Type: Report from Study
  Country: CO (occurrence: CO)
  Receive Date: 20180828
  Receipt Date: 20180828
  Transmission Date: 20181010
  Serious: Yes (Life-Threatening, Hospitalization)
  Sender: FDA-Public Use
  Company Number: CO-INCYTE CORPORATION-2018IN007777

PATIENT

DRUGS (3)
  1. JAKAVI [Suspect]
     Active Substance: RUXOLITINIB
     Indication: MYELOFIBROSIS
     Dosage: 10 MG, QD
     Route: 048
     Dates: start: 20180526, end: 20180630
  2. EXJADE [Suspect]
     Active Substance: DEFERASIROX
     Indication: HAEMOSIDEROSIS
     Dosage: 500 MG, QD
     Route: 048
     Dates: start: 20180614, end: 20180716
  3. ERYTHROPOIETIN [Concomitant]
     Active Substance: ERYTHROPOIETIN
     Indication: PRODUCT USED FOR UNKNOWN INDICATION
     Dosage: 4000 MG, UNK
     Route: 065

REACTIONS (9)
  - Diarrhoea haemorrhagic [Recovered/Resolved]
  - Splenomegaly [Unknown]
  - Gastrointestinal infection [Recovering/Resolving]
  - Platelet count decreased [Recovering/Resolving]
  - Diarrhoea [Unknown]
  - Influenza [Unknown]
  - Fatigue [Recovering/Resolving]
  - Oropharyngeal pain [Unknown]
  - Muscular weakness [Recovering/Resolving]

NARRATIVE: CASE EVENT DATE: 20180806
